FAERS Safety Report 7325125-2 (Version None)
Quarter: 2011Q1

REPORT INFORMATION
  Report Type: 
  Country: None (occurrence: None)
  Receive Date: 20110302
  Receipt Date: 20110222
  Transmission Date: 20110831
  Serious: No
  Sender: FDA-Public Use
  Company Number: US-BIOGENIDEC-2011BI007115

PATIENT
  Sex: Female

DRUGS (4)
  1. SYNTHROID [Concomitant]
     Indication: HYPERTHYROIDISM
     Dates: start: 19970101
  2. AVONEX [Suspect]
     Indication: MULTIPLE SCLEROSIS
     Route: 030
     Dates: start: 20070129
  3. KLONOPIN [Concomitant]
     Indication: BALANCE DISORDER
     Dates: start: 19910101
  4. FOSAMAX [Concomitant]
     Indication: OSTEOPOROSIS
     Dates: start: 20060101

REACTIONS (6)
  - BODY TEMPERATURE DECREASED [None]
  - FATIGUE [None]
  - PYREXIA [None]
  - TEMPERATURE REGULATION DISORDER [None]
  - SKIN DISCOLOURATION [None]
  - DIZZINESS [None]
